FAERS Safety Report 17665224 (Version 1)
Quarter: 2020Q2

REPORT INFORMATION
  Report Type: Spontaneous
  Country: US (occurrence: US)
  Receive Date: 20200414
  Receipt Date: 20200414
  Transmission Date: 20200713
  Serious: Yes (Other)
  Sender: FDA-Public Use
  Company Number: NVSC2020US098738

PATIENT
  Age: 61 Year
  Sex: Female

DRUGS (3)
  1. PACLITAXEL. [Suspect]
     Active Substance: PACLITAXEL
     Indication: UTERINE CANCER
     Dosage: (EVERY 21 DAYS)
     Route: 042
  2. CARBOPLATIN. [Suspect]
     Active Substance: CARBOPLATIN
     Indication: UTERINE CANCER
     Dosage: EVERY 21 DAYS
     Route: 042
  3. ZOLEDRONIC ACID [Concomitant]
     Active Substance: ZOLEDRONIC ACID
     Indication: UTERINE CANCER
     Dosage: 4 MG, Q4W
     Route: 042

REACTIONS (7)
  - Peripheral motor neuropathy [Unknown]
  - Fall [Unknown]
  - Facial paralysis [Recovered/Resolved]
  - Muscular weakness [Unknown]
  - Acute kidney injury [Unknown]
  - Eye movement disorder [Recovered/Resolved]
  - Product use in unapproved indication [Unknown]
